FAERS Safety Report 5295764-1 (Version None)
Quarter: 2007Q2

REPORT INFORMATION
  Report Type: 
  Country: None (occurrence: None)
  Receive Date: 20070406
  Receipt Date: 20070323
  Transmission Date: 20071010
  Serious: Yes (Other)
  Sender: FDA-Public Use
  Company Number: 2007EU000680

PATIENT
  Age: 25 Year
  Sex: Male

DRUGS (1)
  1. PROGRAF [Suspect]
     Indication: DERMATITIS ATOPIC
     Dosage: 0.1 %, 3XWEEKLY, TOPICAL
     Route: 061
     Dates: start: 20030101, end: 20070301

REACTIONS (7)
  - BLOOD LACTATE DEHYDROGENASE INCREASED [None]
  - CONDITION AGGRAVATED [None]
  - DERMATITIS ATOPIC [None]
  - FATIGUE [None]
  - INSOMNIA [None]
  - LYMPHOMA [None]
  - SUPERINFECTION [None]
